FAERS Safety Report 23725607 (Version 1)
Quarter: 2024Q2

REPORT INFORMATION
  Report Type: Spontaneous
  Country: ZA (occurrence: ZA)
  Receive Date: 20240410
  Receipt Date: 20240410
  Transmission Date: 20240716
  Serious: Yes (Death)
  Sender: FDA-Public Use
  Company Number: ZA-ABBOTT-2024A-1379165

PATIENT
  Age: 77 Year
  Sex: Female

DRUGS (2)
  1. PANCREATIN [Suspect]
     Active Substance: PANCRELIPASE
     Indication: Chemotherapy
     Dosage: CREON (PANCEATIN) 1000 G TAKE TWO TABLETS DAILY
     Route: 048
  2. METOCLOPRAMIDE HYDROCHLORIDE [Concomitant]
     Active Substance: METOCLOPRAMIDE HYDROCHLORIDE
     Indication: Vomiting
     Route: 048

REACTIONS (1)
  - Death [Fatal]
